FAERS Safety Report 7460175-7 (Version None)
Quarter: 2011Q2

REPORT INFORMATION
  Report Type: 
  Country: None (occurrence: None)
  Receive Date: 20110505
  Receipt Date: 20110426
  Transmission Date: 20111010
  Serious: Yes (Death, Hospitalization, Other)
  Sender: FDA-Public Use
  Company Number: JP-ROCHE-752800

PATIENT
  Sex: Male

DRUGS (36)
  1. PREDONINE [Suspect]
     Route: 048
     Dates: start: 20100919, end: 20100921
  2. DEXAMETHASONE PALMITATE [Suspect]
     Route: 041
     Dates: start: 20101018, end: 20101025
  3. DEXAMETHASONE PALMITATE [Suspect]
     Route: 041
     Dates: start: 20101026, end: 20101030
  4. DEXAMETHASONE PALMITATE [Suspect]
     Route: 041
     Dates: start: 20101211, end: 20101220
  5. DEXAMETHASONE PALMITATE [Suspect]
     Route: 041
     Dates: start: 20101221, end: 20101227
  6. URSO 250 [Concomitant]
     Route: 048
     Dates: start: 20101211, end: 20110103
  7. DEXAMETHASONE PALMITATE [Suspect]
     Route: 041
     Dates: start: 20101013, end: 20101017
  8. DEXAMETHASONE PALMITATE [Suspect]
     Route: 041
     Dates: start: 20101201, end: 20101210
  9. TOCILIZUMAB [Suspect]
     Route: 041
     Dates: start: 20101116, end: 20101116
  10. SANDIMMUNE [Suspect]
     Route: 041
     Dates: start: 20101119, end: 20101122
  11. NEORAL [Suspect]
     Route: 048
     Dates: start: 20101211, end: 20110104
  12. RENIVEZE [Concomitant]
     Route: 048
     Dates: start: 20101008, end: 20110103
  13. FAMOTIDINE [Concomitant]
     Route: 048
     Dates: start: 20100910, end: 20110103
  14. DIDRONEL [Concomitant]
     Route: 048
     Dates: start: 20101210, end: 20101224
  15. TOCILIZUMAB [Suspect]
     Indication: JUVENILE ARTHRITIS
     Route: 041
     Dates: start: 20101109, end: 20101109
  16. TOCILIZUMAB [Suspect]
     Route: 041
     Dates: start: 20101214, end: 20101228
  17. NEORAL [Suspect]
     Dosage: PERORAL LIQUID PREPARATION
     Route: 048
     Dates: start: 20101004, end: 20101007
  18. DIDRONEL [Concomitant]
     Route: 048
     Dates: start: 20101210, end: 20101224
  19. SANDIMMUNE [Suspect]
     Indication: JUVENILE ARTHRITIS
     Route: 041
     Dates: start: 20100924, end: 20100926
  20. PREDONINE [Suspect]
     Dosage: PERORAL AGENT
     Route: 048
     Dates: start: 20100910, end: 20100914
  21. PREDONINE [Suspect]
     Route: 048
     Dates: start: 20101001, end: 20101119
  22. DEXAMETHASONE PALMITATE [Suspect]
     Route: 041
     Dates: start: 20101001, end: 20101012
  23. DEXAMETHASONE PALMITATE [Suspect]
     Route: 041
     Dates: start: 20101125, end: 20101130
  24. DEXAMETHASONE PALMITATE [Suspect]
     Route: 041
     Dates: start: 20101228, end: 20110103
  25. DEXAMETHASONE PALMITATE [Suspect]
     Route: 041
     Dates: start: 20110104, end: 20110117
  26. SANDIMMUNE [Suspect]
     Route: 041
     Dates: start: 20101123, end: 20101210
  27. DEXAMETHASONE PALMITATE [Suspect]
     Route: 041
     Dates: start: 20101119, end: 20101124
  28. NEORAL [Suspect]
     Route: 048
     Dates: start: 20101013, end: 20101119
  29. DEXAMETHASONE PALMITATE [Suspect]
     Route: 041
     Dates: start: 20101025, end: 20101025
  30. DEXAMETHASONE PALMITATE [Suspect]
     Route: 041
     Dates: start: 20110124
  31. METHYLPREDNISOLONE [Suspect]
     Route: 042
     Dates: start: 20100915, end: 20100918
  32. METHYLPREDNISOLONE [Suspect]
     Route: 042
     Dates: start: 20100922, end: 20100924
  33. SANDIMMUNE [Suspect]
     Route: 041
     Dates: start: 20100927, end: 20100930
  34. SANDIMMUNE [Suspect]
     Route: 041
     Dates: start: 20101001, end: 20101003
  35. PREDONINE [Suspect]
     Route: 048
     Dates: start: 20101221, end: 20110103
  36. NEORAL [Suspect]
     Route: 048
     Dates: start: 20101008, end: 20101012

REACTIONS (14)
  - RENAL FAILURE [None]
  - HISTIOCYTOSIS HAEMATOPHAGIC [None]
  - PLATELET COUNT DECREASED [None]
  - CARDIAC FAILURE [None]
  - HEPATIC FAILURE [None]
  - ESCHERICHIA BACTERAEMIA [None]
  - ABDOMINAL DISCOMFORT [None]
  - CYTOMEGALOVIRUS TEST POSITIVE [None]
  - VASCULITIS [None]
  - HYPERLIPIDAEMIA [None]
  - RESPIRATORY FAILURE [None]
  - TOXIC ENCEPHALOPATHY [None]
  - PLEURAL EFFUSION [None]
  - HYPERGLYCAEMIA [None]
